FAERS Safety Report 20322543 (Version 1)
Quarter: 2022Q1

REPORT INFORMATION
  Report Type: Spontaneous
  Country: US (occurrence: None)
  Receive Date: 20220111
  Receipt Date: 20220111
  Transmission Date: 20220423
  Serious: Yes (Hospitalization)
  Sender: FDA-Public Use
  Company Number: None

PATIENT
  Age: 77 Year
  Sex: Male
  Weight: 77 kg

DRUGS (1)
  1. PACLITAXEL [Suspect]
     Active Substance: PACLITAXEL
     Indication: Non-small cell lung cancer
     Dosage: FREQUENCY : ONCE;?
     Route: 042
     Dates: start: 20220103, end: 20220103

REACTIONS (4)
  - Unresponsive to stimuli [None]
  - Bradypnoea [None]
  - Sinus tachycardia [None]
  - Pulse abnormal [None]

NARRATIVE: CASE EVENT DATE: 20220103
